FAERS Safety Report 8978390 (Version 4)
Quarter: 2013Q3

REPORT INFORMATION
  Report Type: Spontaneous
  Country: IT (occurrence: IT)
  Receive Date: 20121221
  Receipt Date: 20130730
  Transmission Date: 20140515
  Serious: Yes (Other)
  Sender: FDA-Public Use
  Company Number: IT-AMGEN-ITASP2012072074

PATIENT
  Age: 78 Year
  Sex: Male
  Weight: 75 kg

DRUGS (10)
  1. ARANESP [Suspect]
     Indication: ANAEMIA
     Dosage: 80 MUG, QWK
     Route: 058
     Dates: start: 20100408, end: 20121030
  2. ALLOPURINOL TEVA [Suspect]
     Indication: HYPERURICAEMIA
     Dosage: 150 MG, QD
     Route: 048
     Dates: start: 20120724, end: 20121030
  3. TORVAST [Concomitant]
     Dosage: 20 MG, UNK
     Route: 048
  4. ROCALTROL [Concomitant]
     Dosage: 0.5 MUG, UNK
     Route: 048
  5. LANOXIN [Concomitant]
     Dosage: 0.062 UNK, UNK
  6. LASIX                              /00032601/ [Concomitant]
     Dosage: 500
  7. PANTORC [Concomitant]
     Dosage: 20 UNK, UNK
  8. CARDURA [Concomitant]
     Dosage: 2 MG, UNK
     Route: 048
  9. TRENTAL [Concomitant]
     Dosage: 400 MG, UNK
     Route: 048
  10. HYDROCORTISONE [Concomitant]

REACTIONS (4)
  - Anaemia macrocytic [Recovering/Resolving]
  - Anti-erythropoietin antibody positive [Unknown]
  - Weight decreased [Unknown]
  - Hypotension [Unknown]
